FAERS Safety Report 24976573 (Version 1)
Quarter: 2025Q1

REPORT INFORMATION
  Report Type: Spontaneous
  Country: US (occurrence: US)
  Receive Date: 20250217
  Receipt Date: 20250217
  Transmission Date: 20250409
  Serious: Yes (Death, Other)
  Sender: DR REDDYS
  Company Number: US-DRL-USA-USA/2025/02/002292

PATIENT
  Sex: Female

DRUGS (8)
  1. DAPTOMYCIN [Suspect]
     Active Substance: DAPTOMYCIN
     Indication: Toxoplasmosis
  2. CLINDAMYCIN [Suspect]
     Active Substance: CLINDAMYCIN
     Indication: Toxoplasmosis
  3. BACTRIM [Suspect]
     Active Substance: SULFAMETHOXAZOLE\TRIMETHOPRIM
     Indication: Toxoplasmosis
  4. MEROPENEM [Suspect]
     Active Substance: MEROPENEM
     Indication: Toxoplasmosis
  5. TIGECYCLINE [Suspect]
     Active Substance: TIGECYCLINE
     Indication: Toxoplasmosis
  6. AMBISOME [Suspect]
     Active Substance: AMPHOTERICIN B
     Indication: Toxoplasmosis
  7. HUMAN IMMUNOGLOBULIN G [Suspect]
     Active Substance: HUMAN IMMUNOGLOBULIN G
     Indication: Toxoplasmosis
  8. ALEMTUZUMAB [Suspect]
     Active Substance: ALEMTUZUMAB
     Indication: Graft versus host disease

REACTIONS (2)
  - Septic shock [Fatal]
  - Drug ineffective for unapproved indication [Unknown]
